FAERS Safety Report 5202213-8 (Version None)
Quarter: 2006Q4

REPORT INFORMATION
  Report Type: 
  Country: None (occurrence: None)
  Receive Date: 20061010
  Receipt Date: 20060118
  Transmission Date: 20070319
  Serious: Yes (Death)
  Sender: FDA-Public Use
  Company Number: 2005P1000519

PATIENT
  Age: 65 Year
  Sex: Male
  Weight: 55 kg

DRUGS (15)
  1. RETEPLASE (RETEPLASE) [Suspect]
     Indication: ACUTE MYOCARDIAL INFARCTION
     Dosage: IV
     Route: 042
     Dates: start: 20051014
  2. ABCIXIMAB (ABCIXIMAB) [Suspect]
     Indication: ACUTE MYOCARDIAL INFARCTION
     Dosage: IV
     Route: 042
     Dates: start: 20051014
  3. ASPIRIN [Concomitant]
  4. ALL OTHER THERAPEUTIC PRODUCTS [Concomitant]
  5. HEPARIN [Concomitant]
  6. FENTANYL TRANSDERMAL SYSTEM [Concomitant]
  7. LYSINE [Concomitant]
  8. OMEPRAZOLE [Concomitant]
  9. FUROSEMIDE [Concomitant]
  10. SPIRONOLACTONE [Concomitant]
  11. FLUVASTATIN [Concomitant]
  12. HEPARIN-GRACTION, SODIUM SALT [Concomitant]
  13. TRAMADOL HCL [Concomitant]
  14. MORPHINE [Concomitant]
  15. METOPROLOL TARTRATE [Concomitant]

REACTIONS (1)
  - CARDIAC FAILURE [None]
